FAERS Safety Report 10346884 (Version 1)
Quarter: 2014Q3

REPORT INFORMATION
  Report Type: Spontaneous
  Country: US (occurrence: None)
  Receive Date: 20140725
  Receipt Date: 20140725
  Transmission Date: 20150326
  Serious: Yes (Life-Threatening, Disabling)
  Sender: FDA-Public Use
  Company Number: None

PATIENT
  Age: 30 Year
  Sex: Female
  Weight: 65.32 kg

DRUGS (2)
  1. SIMVASTATIN. [Suspect]
     Active Substance: SIMVASTATIN
     Indication: BLOOD CHOLESTEROL INCREASED
     Dosage: 40 MG , 1 PER DAY TAKEN BY MOUTH
     Route: 048
     Dates: start: 20020901, end: 20140401
  2. LOVASTATIN. [Suspect]
     Active Substance: LOVASTATIN

REACTIONS (3)
  - Type 2 diabetes mellitus [None]
  - Fear [None]
  - Amnesia [None]
